FAERS Safety Report 24869837 (Version 1)
Quarter: 2025Q1

REPORT INFORMATION
  Report Type: Spontaneous
  Country: US (occurrence: None)
  Receive Date: 20250120
  Receipt Date: 20250120
  Transmission Date: 20250409
  Serious: Yes (Other)
  Sender: FDA-CTU
  Company Number: None

PATIENT
  Age: 42 Year
  Sex: Male
  Weight: 66.5 kg

DRUGS (1)
  1. NICOTINE [Suspect]
     Active Substance: NICOTINE
     Indication: Nicotine dependence
     Dosage: FREQUENCY : DAILY;?
     Route: 062
     Dates: start: 20250104, end: 20250104

REACTIONS (3)
  - Dyspnoea [None]
  - Pharyngeal swelling [None]
  - Drug hypersensitivity [None]

NARRATIVE: CASE EVENT DATE: 20250105
